FAERS Safety Report 7728099-5 (Version None)
Quarter: 2011Q3

REPORT INFORMATION
  Report Type: 
  Country: None (occurrence: None)
  Receive Date: 20110905
  Receipt Date: 20110830
  Transmission Date: 20111222
  Serious: No
  Sender: FDA-Public Use
  Company Number: US-BIOGENIDEC-2011BI033220

PATIENT
  Age: 31 Year
  Sex: Female

DRUGS (4)
  1. AVONEX [Suspect]
     Route: 030
     Dates: start: 20090515, end: 20091001
  2. AVONEX [Suspect]
     Indication: MULTIPLE SCLEROSIS
     Route: 030
     Dates: start: 20110227
  3. AVONEX [Suspect]
     Route: 030
     Dates: start: 20100624, end: 20100921
  4. AVONEX [Suspect]
     Route: 030
     Dates: start: 20060217

REACTIONS (2)
  - MEMORY IMPAIRMENT [None]
  - DYSARTHRIA [None]
